FAERS Safety Report 7352170-3 (Version None)
Quarter: 2011Q1

REPORT INFORMATION
  Report Type: 
  Country: None (occurrence: None)
  Receive Date: 20110315
  Receipt Date: 20101130
  Transmission Date: 20110831
  Serious: Yes (Hospitalization)
  Sender: FDA-Public Use
  Company Number: US-BAYER-201028095NA

PATIENT
  Sex: Female
  Weight: 75 kg

DRUGS (11)
  1. NAPROSYN [Concomitant]
     Dosage: UNK
     Dates: start: 19980101
  2. YASMIN [Suspect]
     Indication: ACNE
     Dosage: UNK UNK, UNK
     Route: 048
     Dates: start: 20020101, end: 20060101
  3. YASMIN [Suspect]
     Indication: ORAL CONTRACEPTION
  4. VICODIN [Concomitant]
     Indication: ABDOMINAL PAIN
  5. MOTRIN [Concomitant]
     Dosage: UNK
     Dates: start: 19980101
  6. YAZ [Suspect]
     Indication: ACNE
     Dosage: UNK
     Route: 048
     Dates: start: 20060101, end: 20090101
  7. ZOMIG [Concomitant]
     Indication: MIGRAINE
     Dosage: UNK
     Dates: start: 20070101
  8. PRILOSEC [Concomitant]
  9. ANTIEMETICS AND ANTINAUSEANTS [Concomitant]
     Dosage: UNK
     Dates: start: 20060709
  10. YAZ [Suspect]
     Indication: ORAL CONTRACEPTION
  11. LOVENOX [Concomitant]
     Dosage: UNK
     Dates: start: 20060817

REACTIONS (8)
  - NAUSEA [None]
  - ABDOMINAL PAIN UPPER [None]
  - PAIN [None]
  - CHOLECYSTITIS CHRONIC [None]
  - VOMITING [None]
  - DYSPEPSIA [None]
  - CHOLELITHIASIS [None]
  - FLANK PAIN [None]
